FAERS Safety Report 6250566-4 (Version None)
Quarter: 2009Q2

REPORT INFORMATION
  Report Type: 
  Country: None (occurrence: None)
  Receive Date: 20090630
  Receipt Date: 20090618
  Transmission Date: 20091009
  Serious: Yes (Other)
  Sender: FDA-Public Use
  Company Number: JP-PFIZER INC-2009230804

PATIENT
  Age: 45 Year

DRUGS (4)
  1. SUNITINIB MALATE [Suspect]
     Indication: RENAL CELL CARCINOMA
     Dosage: 50 MG, 1X/DAY
     Route: 048
     Dates: start: 20090403
  2. DEPAKENE [Concomitant]
     Dosage: UNK
     Route: 048
  3. EXCEGRAN [Concomitant]
     Dosage: UNK
     Route: 048
  4. PAXIL [Concomitant]
     Dosage: UNK
     Route: 048

REACTIONS (1)
  - BONE MARROW FAILURE [None]
